FAERS Safety Report 17486747 (Version 4)
Quarter: 2020Q2

REPORT INFORMATION
  Report Type: Spontaneous
  Country: IT (occurrence: IT)
  Receive Date: 20200303
  Receipt Date: 20200416
  Transmission Date: 20200713
  Serious: Yes (Other)
  Sender: FDA-Public Use
  Company Number: IT-VELOXIS PHARMACEUTICALS-2020VELIT-000200

PATIENT
  Age: 43 Year
  Sex: Female

DRUGS (19)
  1. PREDNISONE. [Suspect]
     Active Substance: PREDNISONE
     Dosage: 25 MG QD, DOSE TAPERING
     Route: 065
     Dates: start: 201705, end: 201706
  2. PREDNISONE. [Suspect]
     Active Substance: PREDNISONE
     Dosage: 15 MG QD, DOSE TAPERING
     Route: 065
     Dates: start: 201706, end: 201707
  3. PREDNISONE. [Suspect]
     Active Substance: PREDNISONE
     Dosage: 7.5 MG QD, DOSE TAPERING
     Route: 065
     Dates: start: 201709
  4. ENVARSUS XR [Suspect]
     Active Substance: TACROLIMUS
     Indication: SYSTEMIC LUPUS ERYTHEMATOSUS
     Dosage: UNK, QD
     Route: 065
  5. PREDNISONE. [Suspect]
     Active Substance: PREDNISONE
     Dosage: 25 MG, QD
     Route: 065
     Dates: start: 201607, end: 201705
  6. BELIMUMAB [Suspect]
     Active Substance: BELIMUMAB
     Dosage: UNK
     Route: 065
     Dates: end: 201705
  7. PREDNISONE. [Suspect]
     Active Substance: PREDNISONE
     Dosage: 15 MG, QD
     Route: 065
  8. PREDNISONE. [Suspect]
     Active Substance: PREDNISONE
     Dosage: 10 MG QD, DOSE TAPERING
     Route: 065
     Dates: start: 201708, end: 201709
  9. RITUXIMAB. [Concomitant]
     Active Substance: RITUXIMAB
     Indication: SYSTEMIC LUPUS ERYTHEMATOSUS
     Dosage: UNK
  10. MYCOPHENOLATE MOFETIL. [Suspect]
     Active Substance: MYCOPHENOLATE MOFETIL
     Indication: SYSTEMIC LUPUS ERYTHEMATOSUS
     Dosage: UNK UNK, QD
     Route: 065
  11. IMMUNOGLOBULIN I.V [Concomitant]
     Active Substance: HUMAN IMMUNOGLOBULIN G
     Indication: SYSTEMIC LUPUS ERYTHEMATOSUS
     Dosage: UNK
  12. METHYLPREDNISOLONE. [Concomitant]
     Active Substance: METHYLPREDNISOLONE
     Indication: SYSTEMIC LUPUS ERYTHEMATOSUS
     Dosage: UNK (PULSES)
  13. PREDNISONE. [Suspect]
     Active Substance: PREDNISONE
     Indication: SYSTEMIC LUPUS ERYTHEMATOSUS
     Dosage: 50 MG QD, TAPERING DOSE
     Route: 065
     Dates: start: 201606, end: 201607
  14. BELIMUMAB [Suspect]
     Active Substance: BELIMUMAB
     Indication: SYSTEMIC LUPUS ERYTHEMATOSUS
     Dosage: UNK
     Route: 065
     Dates: start: 201608
  15. BELIMUMAB [Suspect]
     Active Substance: BELIMUMAB
     Dosage: UNK
     Route: 065
     Dates: start: 201705
  16. HYDROXYCHLOROQUINE SULFATE. [Suspect]
     Active Substance: HYDROXYCHLOROQUINE SULFATE
     Indication: SYSTEMIC LUPUS ERYTHEMATOSUS
     Dosage: 400 MG, QD
     Route: 065
  17. PREDNISONE. [Suspect]
     Active Substance: PREDNISONE
     Dosage: 12.5 MG QD, DOSE TAPERING
     Route: 065
     Dates: start: 201707, end: 201708
  18. BELIMUMAB [Suspect]
     Active Substance: BELIMUMAB
     Indication: PROPHYLAXIS AGAINST TRANSPLANT REJECTION
     Dosage: UNK
     Route: 065
  19. BELIMUMAB [Suspect]
     Active Substance: BELIMUMAB
     Dosage: UNK
     Route: 065

REACTIONS (2)
  - Off label use [Unknown]
  - Arthralgia [Recovered/Resolved]
